FAERS Safety Report 9699767 (Version 1)
Quarter: 2013Q4

REPORT INFORMATION
  Report Type: Spontaneous
  Country: US (occurrence: US)
  Receive Date: 20131120
  Receipt Date: 20131120
  Transmission Date: 20140711
  Serious: Yes (Other)
  Sender: FDA-Public Use
  Company Number: US-UCBSA-103498

PATIENT
  Sex: Female

DRUGS (4)
  1. KEPPRA [Suspect]
     Indication: CONVULSION
     Dosage: 2500 MG
  2. TEGRETOL [Concomitant]
     Dosage: UNKNOWN DOSE
  3. LAMICTAL [Concomitant]
     Dosage: 800 MG
  4. VIMPAT [Concomitant]

REACTIONS (6)
  - Convulsion [Unknown]
  - Partial seizures [Unknown]
  - Complex partial seizures [Unknown]
  - Epilepsy [Unknown]
  - Insomnia [Unknown]
  - Anxiety [Unknown]
